FAERS Safety Report 6883943-9 (Version None)
Quarter: 2010Q3

REPORT INFORMATION
  Report Type: 
  Country: None (occurrence: None)
  Receive Date: 20100729
  Receipt Date: 20100723
  Transmission Date: 20110219
  Serious: Yes (Hospitalization, Disabling)
  Sender: FDA-Public Use
  Company Number: GB-SANOFI-AVENTIS-2010SA043533

PATIENT
  Age: 63 Year
  Sex: Female
  Weight: 60 kg

DRUGS (2)
  1. OXALIPLATIN [Suspect]
     Dates: start: 20100603, end: 20100625
  2. CAPECITABINE [Suspect]
     Dates: start: 20100603, end: 20100625

REACTIONS (3)
  - CHOLESTATIC LIVER INJURY [None]
  - DIARRHOEA [None]
  - RENAL FAILURE ACUTE [None]
